FAERS Safety Report 9896691 (Version 1)
Quarter: 2014Q1

REPORT INFORMATION
  Report Type: Spontaneous
  Country: US (occurrence: US)
  Receive Date: 20140213
  Receipt Date: 20140213
  Transmission Date: 20141002
  Serious: No
  Sender: FDA-Public Use
  Company Number: US-BRISTOL-MYERS SQUIBB COMPANY-18896902

PATIENT
  Age: 66 Year
  Sex: Female
  Weight: 55.33 kg

DRUGS (2)
  1. ABATACEPT SUBQ INJECTION 125MG/ML [Suspect]
  2. METHOTREXATE [Suspect]
     Dosage: 2 TABS

REACTIONS (6)
  - Swelling face [Unknown]
  - Abdominal discomfort [Unknown]
  - Arthralgia [Unknown]
  - Skin swelling [Unknown]
  - Pain [Unknown]
  - Malaise [Unknown]
